FAERS Safety Report 9526364 (Version 1)
Quarter: 2013Q3

REPORT INFORMATION
  Report Type: Spontaneous
  Country: IT (occurrence: IT)
  Receive Date: 20130916
  Receipt Date: 20130916
  Transmission Date: 20140515
  Serious: Yes (Hospitalization)
  Sender: FDA-Public Use
  Company Number: ALCN2013IT004621

PATIENT
  Age: 28 Year
  Sex: Male

DRUGS (2)
  1. CIPRO HC [Suspect]
     Dosage: 8 GTT, UNK
     Route: 047
     Dates: start: 20130817, end: 20130818
  2. MONOFLOX [Suspect]
     Indication: KERATITIS
     Dosage: UNK UNK, QID
     Route: 047

REACTIONS (4)
  - Medication error [Recovering/Resolving]
  - Ulcerative keratitis [Recovering/Resolving]
  - Condition aggravated [Recovering/Resolving]
  - Chemical injury [Recovering/Resolving]
